FAERS Safety Report 5284962-9 (Version None)
Quarter: 2007Q1

REPORT INFORMATION
  Report Type: 
  Country: None (occurrence: None)
  Receive Date: 20061229
  Receipt Date: 20060912
  Transmission Date: 20070707
  Serious: Yes (Other)
  Sender: FDA-Public Use
  Company Number: 2006UW17928

PATIENT
  Age: 41 Year
  Sex: Female
  Weight: 74.842 kg

DRUGS (3)
  1. CRESTOR [Suspect]
     Dosage: 10 MG PO
     Route: 048
     Dates: start: 20060901
  2. VITAMIN CAP [Concomitant]
  3. DIET PILL [Concomitant]

REACTIONS (1)
  - VISION BLURRED [None]
